FAERS Safety Report 7270434-9 (Version None)
Quarter: 2011Q1

REPORT INFORMATION
  Report Type: 
  Country: None (occurrence: None)
  Receive Date: 20110202
  Receipt Date: 20110125
  Transmission Date: 20110831
  Serious: Yes (Death, Hospitalization)
  Sender: FDA-Public Use
  Company Number: US-BRISTOL-MYERS SQUIBB COMPANY-15264112

PATIENT
  Age: 69 Year
  Sex: Female
  Weight: 54 kg

DRUGS (24)
  1. GABAPENTIN [Concomitant]
     Route: 065
  2. EVISTA [Concomitant]
  3. OMEPRAZOLE [Concomitant]
     Dates: start: 20100823
  4. POTASSIUM CHLORIDE [Concomitant]
  5. ENOXAPARIN [Concomitant]
  6. HYDROCHLOROTHIAZIDE [Concomitant]
  7. VITAMIN D [Concomitant]
     Dates: start: 20100823
  8. CETUXIMAB [Suspect]
     Indication: NON-SMALL CELL LUNG CANCER
     Dosage: RECENT INF:13AUG10 NO OF INF:4 HELD ON 20AUG10
     Route: 042
     Dates: start: 20100722, end: 20100813
  9. ATIVAN [Concomitant]
     Dates: start: 20100802
  10. COUMADIN [Concomitant]
     Dates: start: 20100702
  11. ACETAMINOPHEN [Concomitant]
     Route: 065
  12. FUROSEMIDE [Concomitant]
  13. DEXAMETHASONE [Concomitant]
     Dates: start: 20100812
  14. CARBOPLATIN [Suspect]
     Indication: NON-SMALL CELL LUNG CANCER
     Dosage: RECENT INF:13AUG10 NO OF INF:2 HELD ON 20AUG10
     Route: 042
     Dates: start: 20100722, end: 20100813
  15. LOVENOX [Concomitant]
     Indication: DEEP VEIN THROMBOSIS
     Route: 058
     Dates: start: 20100726, end: 20100811
  16. DOCUSATE [Concomitant]
  17. MAGNESIUM SULFATE [Concomitant]
  18. ALBUTEROL [Concomitant]
     Dates: start: 20100823
  19. AMLODIPINE [Concomitant]
     Route: 065
  20. OXYCODONE HCL [Concomitant]
  21. GEMCITABINE [Suspect]
     Indication: NON-SMALL CELL LUNG CANCER
     Dosage: RECENT INF:13AUG10 NO OF INF:3 HELD ON 20AUG10
     Route: 042
     Dates: start: 20100722, end: 20100813
  22. LOVENOX [Concomitant]
     Indication: PULMONARY EMBOLISM
     Route: 058
     Dates: start: 20100726, end: 20100811
  23. PROCHLORPERAZINE [Concomitant]
  24. MULTIPLE VITAMINS [Concomitant]
     Dates: start: 20100823

REACTIONS (2)
  - ARTERIAL THROMBOSIS [None]
  - DEATH [None]
